FAERS Safety Report 10147285 (Version 1)
Quarter: 2014Q2

REPORT INFORMATION
  Report Type: Spontaneous
  Country: US (occurrence: US)
  Receive Date: 20140501
  Receipt Date: 20140501
  Transmission Date: 20141212
  Serious: No
  Sender: FDA-Public Use
  Company Number: US-SA-2014SA004548

PATIENT
  Age: 48 Year
  Sex: Female
  Weight: 49.6 kg

DRUGS (3)
  1. HECTOROL [Suspect]
     Indication: HYPERPHOSPHATAEMIA
     Route: 065
     Dates: start: 20131231, end: 20140106
  2. VENOFER [Concomitant]
     Indication: IRON DEFICIENCY
     Dates: start: 20131223, end: 20140113
  3. HEPARIN [Concomitant]
     Indication: DIALYSIS
     Dosage: DOSE:3000 UNIT(S)

REACTIONS (2)
  - Nausea [Recovered/Resolved]
  - Dysgeusia [Recovered/Resolved]
